FAERS Safety Report 8022944-4 (Version None)
Quarter: 2011Q4

REPORT INFORMATION
  Report Type: 
  Country: None (occurrence: None)
  Receive Date: 20111130
  Receipt Date: 20110929
  Transmission Date: 20120403
  Serious: Yes (Hospitalization)
  Sender: FDA-Public Use
  Company Number: 334022

PATIENT
  Age: 77 Year
  Sex: Female

DRUGS (19)
  1. BACLOFEN [Concomitant]
  2. ARICEPT [Concomitant]
  3. PLAVIX [Concomitant]
  4. CELEXA [Concomitant]
  5. LYRICA [Concomitant]
  6. ALEVE [Concomitant]
  7. ZETIA [Concomitant]
  8. PLAVIX [Concomitant]
  9. LASIX [Concomitant]
  10. ZANTAC [Concomitant]
  11. NOVOLOG MIX 70/30 [Suspect]
     Indication: TYPE 2 DIABETES MELLITUS
     Dosage: 45 AM AND 25 PM, SUBCUTANEOUS ; 5 U, SUBCUTANEOUS
     Route: 058
  12. GLUCOPHAGE [Concomitant]
  13. ASPIRIN [Concomitant]
  14. LIPITOR [Concomitant]
  15. INDERAL LA [Concomitant]
  16. STARLIX [Concomitant]
  17. THERAGRAN-M /00610701/ (MINERALS NOS, VITAMINS NOS) [Concomitant]
  18. ASPIRIN [Concomitant]
  19. SEROQUEL [Concomitant]

REACTIONS (2)
  - BLOOD GLUCOSE DECREASED [None]
  - BLOOD GLUCOSE INCREASED [None]
